FAERS Safety Report 6182124-4 (Version None)
Quarter: 2009Q2

REPORT INFORMATION
  Report Type: 
  Country: None (occurrence: None)
  Receive Date: 20090507
  Receipt Date: 20090430
  Transmission Date: 20091009
  Serious: No
  Sender: FDA-Public Use
  Company Number: US-JNJFOC-20090500705

PATIENT
  Sex: Male

DRUGS (1)
  1. DURAGESIC-100 [Suspect]
     Indication: DRUG USE FOR UNKNOWN INDICATION
     Route: 062

REACTIONS (9)
  - ACTIVITIES OF DAILY LIVING IMPAIRED [None]
  - APPLICATION SITE ERYTHEMA [None]
  - DEVICE LEAKAGE [None]
  - DRUG DOSE OMISSION [None]
  - DRUG EFFECT INCREASED [None]
  - FEELING ABNORMAL [None]
  - FLUSHING [None]
  - INAPPROPRIATE SCHEDULE OF DRUG ADMINISTRATION [None]
  - WRONG TECHNIQUE IN DRUG USAGE PROCESS [None]
